FAERS Safety Report 9640072 (Version 1)
Quarter: 2013Q4

REPORT INFORMATION
  Report Type: Spontaneous
  Country: US (occurrence: None)
  Receive Date: 20131022
  Receipt Date: 20131022
  Transmission Date: 20140711
  Serious: Yes (Hospitalization)
  Sender: FDA-Public Use
  Company Number: None

PATIENT
  Age: 54 Year
  Sex: Male

DRUGS (1)
  1. EXJADE 500MG NOVARTIS [Suspect]
     Indication: IRON OVERLOAD
     Route: 048
     Dates: start: 20121030

REACTIONS (2)
  - Rash generalised [None]
  - Eye swelling [None]
